FAERS Safety Report 9434769 (Version 1)
Quarter: 2013Q3

REPORT INFORMATION
  Report Type: Spontaneous
  Country: US (occurrence: US)
  Receive Date: 20130801
  Receipt Date: 20130801
  Transmission Date: 20140515
  Serious: Yes (Death, Other)
  Sender: FDA-Public Use
  Company Number: US-PFIZER INC-2013222188

PATIENT
  Age: 87 Year
  Sex: Female

DRUGS (1)
  1. REVATIO [Suspect]
     Indication: PULMONARY HYPERTENSION
     Dosage: 1 DF, 3X/DAY (1 TABLET TID)
     Dates: start: 20100401

REACTIONS (1)
  - Multi-organ failure [Fatal]
